FAERS Safety Report 7157332-6 (Version None)
Quarter: 2010Q4

REPORT INFORMATION
  Report Type: 
  Country: None (occurrence: None)
  Receive Date: 20101214
  Receipt Date: 20101122
  Transmission Date: 20110411
  Serious: Yes (Other)
  Sender: FDA-Public Use
  Company Number: US-PFIZER INC-2010166336

PATIENT
  Age: 15 Year
  Sex: Female
  Weight: 63.492 kg

DRUGS (3)
  1. CHILDREN'S MOTRIN [Suspect]
     Dosage: 100 MG, 1X/DAY
     Route: 048
     Dates: start: 20101122, end: 20101122
  2. PRILOSEC [Concomitant]
     Indication: OESOPHAGEAL DISORDER
     Dosage: UNK
  3. ADRENERGICS FOR SYSTEMIC USE [Concomitant]

REACTIONS (2)
  - ANAPHYLACTIC REACTION [None]
  - PRODUCT QUALITY ISSUE [None]
